FAERS Safety Report 7006353-2 (Version None)
Quarter: 2010Q3

REPORT INFORMATION
  Report Type: 
  Country: None (occurrence: None)
  Receive Date: 20100921
  Receipt Date: 20100913
  Transmission Date: 20110219
  Serious: Yes (Other)
  Sender: FDA-Public Use
  Company Number: US-AMGEN-QUU438062

PATIENT
  Sex: Female

DRUGS (3)
  1. NPLATE [Suspect]
     Indication: IDIOPATHIC THROMBOCYTOPENIC PURPURA
     Dates: start: 20081024, end: 20090409
  2. CORTICOSTEROIDS [Concomitant]
     Dates: start: 20081012
  3. IMMU-G [Concomitant]
     Dates: start: 20080303

REACTIONS (1)
  - THERAPEUTIC RESPONSE DECREASED [None]
